FAERS Safety Report 13628881 (Version 1)
Quarter: 2017Q2

REPORT INFORMATION
  Report Type: Spontaneous
  Country: US (occurrence: US)
  Receive Date: 20170531
  Receipt Date: 20170531
  Transmission Date: 20170830
  Serious: No
  Sender: FDA-Public Use
  Company Number: US-ASTELLAS-1056373

PATIENT
  Weight: 49.49 kg

DRUGS (2)
  1. TARCEVA [Suspect]
     Active Substance: ERLOTINIB HYDROCHLORIDE
     Indication: PRODUCT USED FOR UNKNOWN INDICATION
     Route: 048
     Dates: start: 20120223, end: 20120329
  2. AVASTIN [Concomitant]
     Active Substance: BEVACIZUMAB

REACTIONS (11)
  - Toothache [Unknown]
  - Retching [Unknown]
  - Dysgeusia [Unknown]
  - Dry skin [Unknown]
  - Gingival pain [Unknown]
  - Skin exfoliation [Unknown]
  - Oral pain [Unknown]
  - Vomiting [Unknown]
  - Gingival bleeding [Unknown]
  - Tongue disorder [Unknown]
  - Diarrhoea [Unknown]
